FAERS Safety Report 21244166 (Version 1)
Quarter: 2022Q3

REPORT INFORMATION
  Report Type: Report from Study
  Country: CO (occurrence: CO)
  Receive Date: 20220823
  Receipt Date: 20220823
  Transmission Date: 20221027
  Serious: Yes (Life-Threatening, Hospitalization, Other)
  Sender: FDA-Public Use
  Company Number: CO-ABBVIE-22K-036-4513494-00

PATIENT
  Sex: Female
  Weight: 56 kg

DRUGS (1)
  1. HUMIRA [Suspect]
     Active Substance: ADALIMUMAB
     Indication: Crohn^s disease
     Route: 058
     Dates: start: 20180818

REACTIONS (15)
  - Respiratory arrest [Recovering/Resolving]
  - Intestinal obstruction [Recovering/Resolving]
  - Lung perforation [Recovering/Resolving]
  - Pulmonary oedema [Recovering/Resolving]
  - Ileostomy [Recovering/Resolving]
  - Ileostomy closure [Recovering/Resolving]
  - Cerebral infarction [Recovering/Resolving]
  - Dyskinesia [Recovering/Resolving]
  - Metamorphopsia [Recovering/Resolving]
  - Nasal congestion [Not Recovered/Not Resolved]
  - Cough [Not Recovered/Not Resolved]
  - Back pain [Recovering/Resolving]
  - Tremor [Unknown]
  - Influenza like illness [Not Recovered/Not Resolved]
  - Pain [Recovering/Resolving]

NARRATIVE: CASE EVENT DATE: 20200101
